FAERS Safety Report 8559240-2 (Version None)
Quarter: 2012Q3

REPORT INFORMATION
  Report Type: 
  Country: None (occurrence: None)
  Receive Date: 20120720
  Receipt Date: 20120709
  Transmission Date: 20120928
  Serious: Yes (Other)
  Sender: FDA-Public Use
  Company Number: AUR-APL-2012-02958

PATIENT
  Age: 54 Year
  Sex: Female

DRUGS (7)
  1. GABAPENTIN [Suspect]
     Indication: ABDOMINAL PAIN
     Dosage: 600 MG (300 MG, 2 IN 1 D), ORAL
     Route: 048
     Dates: start: 20120620, end: 20120624
  2. OMEPRAZOLE [Concomitant]
  3. AMITRIPTYLINE HCL [Concomitant]
  4. MORPHINE SULFATE [Concomitant]
  5. DOCUSATE SODIUM (DOCUSATE SODIUM) [Concomitant]
  6. ORAMORPH SR [Concomitant]
  7. SENNA-MINT WAF [Concomitant]

REACTIONS (3)
  - CONFUSIONAL STATE [None]
  - HIP FRACTURE [None]
  - FALL [None]
